FAERS Safety Report 8485103-7 (Version None)
Quarter: 2012Q3

REPORT INFORMATION
  Report Type: 
  Country: None (occurrence: None)
  Receive Date: 20120703
  Receipt Date: 20120628
  Transmission Date: 20120928
  Serious: Yes (Death, Hospitalization, Other)
  Sender: FDA-Public Use
  Company Number: US-BAYER-2012-064834

PATIENT
  Age: 30 Year
  Sex: Female
  Weight: 89.796 kg

DRUGS (16)
  1. ULTRAM [Concomitant]
     Dosage: UNK
     Dates: start: 20110728
  2. PREDNISONE [Concomitant]
     Dosage: 20 MG, UNK
     Dates: start: 20110907
  3. ALBUTEROL [Concomitant]
  4. YASMIN [Suspect]
  5. CLARITIN [Concomitant]
     Dosage: UNK
     Dates: start: 20110816
  6. PROPOFOL [Concomitant]
     Indication: SEDATION
  7. EPINEPHRINE [Concomitant]
  8. CIPROFLOXACIN HYDROCHLORIDE [Concomitant]
     Dosage: 500 MG, UNK
     Dates: start: 20110907
  9. MULTI-VITAMIN [Concomitant]
  10. BEYAZ [Suspect]
  11. MUCINEX D [Concomitant]
     Dosage: UNK
     Dates: start: 20110913
  12. PROAIR HFA [Concomitant]
     Dosage: UNK
     Dates: start: 20110907
  13. YAZ [Suspect]
  14. VICODIN [Concomitant]
     Dosage: UNK
     Dates: start: 20110728
  15. CIPROFLOXACIN HCL [Concomitant]
  16. ZITHROMAX [Concomitant]
     Dosage: UNK
     Dates: start: 20110728

REACTIONS (3)
  - DEEP VEIN THROMBOSIS [None]
  - PELVIC VENOUS THROMBOSIS [None]
  - PULMONARY EMBOLISM [None]
